FAERS Safety Report 15666344 (Version 14)
Quarter: 2020Q1

REPORT INFORMATION
  Report Type: Report from Study
  Country: US (occurrence: US)
  Receive Date: 20181128
  Receipt Date: 20200214
  Transmission Date: 20200409
  Serious: Yes (Life-Threatening, Hospitalization)
  Sender: FDA-Public Use
  Company Number: US-ACTELION-A-NJ2018-175725

PATIENT
  Age: 54 Year
  Sex: Female
  Weight: 95.24 kg

DRUGS (10)
  1. ADCIRCA [Concomitant]
     Active Substance: TADALAFIL
     Dosage: UNK
     Dates: end: 201811
  2. DILTIAZEM. [Concomitant]
     Active Substance: DILTIAZEM
  3. LEVAQUIN [Concomitant]
     Active Substance: LEVOFLOXACIN
  4. REMODULIN [Suspect]
     Active Substance: TREPROSTINIL
     Indication: PRODUCT USED FOR UNKNOWN INDICATION
     Route: 065
  5. DOXYCYCLINE. [Concomitant]
     Active Substance: DOXYCYCLINE
  6. OPSUMIT [Suspect]
     Active Substance: MACITENTAN
     Indication: PULMONARY HYPERTENSION
     Dosage: 10 MG, QD
     Route: 048
     Dates: start: 20161214
  7. SPIRONOLACTONE. [Concomitant]
     Active Substance: SPIRONOLACTONE
  8. PREDNISONE. [Concomitant]
     Active Substance: PREDNISONE
  9. ORENITRAM [Suspect]
     Active Substance: TREPROSTINIL
     Indication: PRODUCT USED FOR UNKNOWN INDICATION
     Route: 065
  10. ELIQUIS [Concomitant]
     Active Substance: APIXABAN

REACTIONS (39)
  - Device dislocation [Unknown]
  - Thrombosis [Unknown]
  - Cardiomyopathy [Recovered/Resolved]
  - Staphylococcal infection [Unknown]
  - Gastroenteritis [Recovered/Resolved]
  - Adverse drug reaction [Recovered/Resolved]
  - Tooth extraction [Unknown]
  - Pyrexia [Recovered/Resolved with Sequelae]
  - Vomiting [Recovered/Resolved]
  - Drug intolerance [Recovered/Resolved]
  - Sepsis [Recovered/Resolved with Sequelae]
  - Encephalopathy [Recovered/Resolved with Sequelae]
  - Hospitalisation [Unknown]
  - Upper respiratory tract infection [Not Recovered/Not Resolved]
  - Condition aggravated [Not Recovered/Not Resolved]
  - Acute kidney injury [Unknown]
  - Therapy change [Unknown]
  - Infection [Unknown]
  - Catheterisation cardiac [Unknown]
  - Acute myocardial infarction [Unknown]
  - Concomitant disease aggravated [Unknown]
  - Nausea [Recovered/Resolved]
  - Catheter site discharge [Not Recovered/Not Resolved]
  - Hypokalaemia [Unknown]
  - Pulmonary hypertension [Unknown]
  - Sinusitis [Unknown]
  - Dyspnoea [Recovered/Resolved with Sequelae]
  - Catheter site erythema [Not Recovered/Not Resolved]
  - Septic shock [Unknown]
  - Headache [Recovered/Resolved]
  - Catheter site cellulitis [Not Recovered/Not Resolved]
  - Ejection fraction decreased [Recovered/Resolved]
  - Dermatomyositis [Unknown]
  - Malaise [Unknown]
  - Cough [Unknown]
  - Breath sounds abnormal [Unknown]
  - Vascular device infection [Not Recovered/Not Resolved]
  - Diarrhoea [Recovered/Resolved]
  - Nasopharyngitis [Unknown]

NARRATIVE: CASE EVENT DATE: 20171117
